FAERS Safety Report 8842525 (Version 1)
Quarter: 2012Q4

REPORT INFORMATION
  Report Type: 
  Country: TR (occurrence: TR)
  Receive Date: 20121016
  Receipt Date: 20121016
  Transmission Date: 20130627
  Serious: Yes (Other)
  Sender: FDA-Public Use
  Company Number: TR-JNJFOC-20121007406

PATIENT

DRUGS (9)
  1. DOXORUBICIN [Suspect]
     Indication: TRANSITIONAL CELL CARCINOMA
     Dosage: 50 mg/m2/30 minutes on day 1
     Route: 042
  2. PACLITAXEL [Suspect]
     Indication: TRANSITIONAL CELL CARCINOMA
     Dosage: 175 mg/m2/hour on day 1
     Route: 042
  3. GRANULOCYTE COLONY STIMULATING FACTOR [Concomitant]
     Indication: PRODUCT USED FOR UNKNOWN INDICATION
     Route: 065
  4. 5-HT3 SEROTONIN ANTAGONIST [Concomitant]
     Indication: PROPHYLAXIS OF NAUSEA AND VOMITING
     Route: 065
  5. DEXAMETHASONE [Concomitant]
     Indication: PROPHYLAXIS OF NAUSEA AND VOMITING
     Route: 065
  6. METOCLOPRAMIDE [Concomitant]
     Indication: PROPHYLAXIS OF NAUSEA AND VOMITING
     Route: 065
  7. DEXAMETHASONE [Concomitant]
     Indication: PROPHYLAXIS
     Route: 042
  8. RANITIDINE [Concomitant]
     Indication: PROPHYLAXIS
     Route: 042
  9. DIPHENHYDRAMINE [Concomitant]
     Indication: PROPHYLAXIS
     Route: 042

REACTIONS (2)
  - Neuropathy peripheral [Unknown]
  - Off label use [Unknown]
